FAERS Safety Report 4916599-2 (Version None)
Quarter: 2006Q1

REPORT INFORMATION
  Report Type: 
  Country: None (occurrence: None)
  Receive Date: 20060220
  Receipt Date: 20060201
  Transmission Date: 20060701
  Serious: Yes (Hospitalization)
  Sender: FDA-Public Use
  Company Number: 2006JP000189

PATIENT
  Age: 39 Year
  Sex: Female
  Weight: 72.8 kg

DRUGS (2)
  1. CEFAZOLIN SODIUM                   09 [Suspect]
     Dosage: 1G TWICE PER DAY
     Route: 042
     Dates: start: 20051220, end: 20051222
  2. VICCILLIN [Suspect]
     Dosage: 1G FOUR TIMES PER DAY
     Route: 042
     Dates: start: 20051219, end: 20051219

REACTIONS (5)
  - ACUTE GENERALISED EXANTHEMATOUS PUSTULOSIS [None]
  - DRUG ERUPTION [None]
  - ERYTHEMA [None]
  - PYREXIA [None]
  - RASH [None]
